FAERS Safety Report 7784821-3 (Version None)
Quarter: 2011Q3

REPORT INFORMATION
  Report Type: 
  Country: None (occurrence: None)
  Receive Date: 20110928
  Receipt Date: 20110923
  Transmission Date: 20111222
  Serious: Yes (Death, Hospitalization)
  Sender: FDA-Public Use
  Company Number: US-AMGEN-USASP2011048414

PATIENT
  Sex: Male

DRUGS (1)
  1. NPLATE [Suspect]
     Indication: THROMBOCYTOPENIA
     Dosage: 3.50 MUG/KG, UNK
     Dates: start: 20110311, end: 20110707

REACTIONS (2)
  - HOSPITALISATION [None]
  - COLON CANCER METASTATIC [None]
